FAERS Safety Report 18518119 (Version 2)
Quarter: 2021Q1

REPORT INFORMATION
  Report Type: Spontaneous
  Country: US (occurrence: US)
  Receive Date: 20201118
  Receipt Date: 20210317
  Transmission Date: 20210419
  Serious: No
  Sender: FDA-Public Use
  Company Number: ALC2020US009042

PATIENT
  Sex: Female

DRUGS (1)
  1. ICAPS AREDS 2 [Suspect]
     Active Substance: MINERALS\VITAMINS
     Indication: MACULAR DEGENERATION
     Dosage: UNK
     Route: 048

REACTIONS (4)
  - Nausea [Recovered/Resolved]
  - Abdominal pain [Recovering/Resolving]
  - Dyspepsia [Recovered/Resolved]
  - Discomfort [Recovered/Resolved]

NARRATIVE: CASE EVENT DATE: 20201005
